FAERS Safety Report 6261811-3 (Version None)
Quarter: 2009Q3

REPORT INFORMATION
  Report Type: 
  Country: None (occurrence: None)
  Receive Date: 20090702
  Receipt Date: 20090306
  Transmission Date: 20100115
  Serious: No
  Sender: FDA-Public Use
  Company Number: 1000005082

PATIENT
  Age: 64 Year
  Sex: Female

DRUGS (1)
  1. BYSTOLIC [Suspect]
     Dosage: 10 MG (5 MG, 2 IN 1 D), ORAL
     Route: 048
     Dates: start: 20080101, end: 20090101

REACTIONS (1)
  - FLATULENCE [None]
